FAERS Safety Report 5225500-6 (Version None)
Quarter: 2007Q1

REPORT INFORMATION
  Report Type: 
  Country: None (occurrence: None)
  Receive Date: 20061201
  Receipt Date: 20060824
  Transmission Date: 20070707
  Serious: No
  Sender: FDA-Public Use
  Company Number: US200608005438

PATIENT
  Age: 28 Year
  Sex: Female
  Weight: 57.1 kg

DRUGS (1)
  1. CYMBALTA(DULOXETINE HYDROCHLORIDE UNKNOWN FORMIULATION) [Suspect]
     Indication: FIBROMYALGIA
     Dosage: 20 MG
     Dates: start: 20060824

REACTIONS (7)
  - ANXIETY [None]
  - BLOOD GLUCOSE INCREASED [None]
  - CHEST DISCOMFORT [None]
  - EYE DISORDER [None]
  - FEELING ABNORMAL [None]
  - MYDRIASIS [None]
  - PHOTOPHOBIA [None]
